FAERS Safety Report 17465314 (Version 1)
Quarter: 2020Q1

REPORT INFORMATION
  Report Type: Spontaneous
  Country: US (occurrence: US)
  Receive Date: 20200226
  Receipt Date: 20200226
  Transmission Date: 20200409
  Serious: Yes (Hospitalization, Other)
  Sender: FDA-Public Use
  Company Number: US-MICRO LABS LIMITED-ML2020-00487

PATIENT
  Age: 58 Year
  Sex: Female

DRUGS (1)
  1. VERAPAMIL HYDROCHLORIDE. [Suspect]
     Active Substance: VERAPAMIL HYDROCHLORIDE
     Indication: VASOSPASM
     Dosage: TOTAL DOSE APPROXIMATELY 150MG OF VERAPAMIL
     Route: 013

REACTIONS (2)
  - Pulmonary oedema [Unknown]
  - Hypotension [Unknown]
